FAERS Safety Report 26091735 (Version 1)
Quarter: 2025Q4

REPORT INFORMATION
  Report Type: Spontaneous
  Country: JP (occurrence: JP)
  Receive Date: 20251126
  Receipt Date: 20251126
  Transmission Date: 20260117
  Serious: Yes (Other)
  Sender: ALEXION PHARMACEUTICALS
  Company Number: JP-ASTRAZENECA-202509JPN016030JP

PATIENT
  Age: 49 Year
  Sex: Female

DRUGS (3)
  1. FASLODEX [Suspect]
     Active Substance: FULVESTRANT
     Indication: Breast cancer recurrent
     Dosage: UNK
     Route: 065
  2. FASLODEX [Suspect]
     Active Substance: FULVESTRANT
  3. TRUQAP [Suspect]
     Active Substance: CAPIVASERTIB
     Indication: Breast cancer recurrent
     Dosage: 400 MILLIGRAM
     Route: 065

REACTIONS (4)
  - Urticaria [Recovering/Resolving]
  - Metastases to central nervous system [Unknown]
  - Dizziness [Unknown]
  - Rash [Not Recovered/Not Resolved]
